FAERS Safety Report 13599280 (Version 2)
Quarter: 2017Q2

REPORT INFORMATION
  Report Type: Spontaneous
  Country: IT (occurrence: IT)
  Receive Date: 20170531
  Receipt Date: 20170605
  Transmission Date: 20170830
  Serious: Yes (Death, Other)
  Sender: FDA-Public Use
  Company Number: IT-PFIZER INC-2017237171

PATIENT
  Age: 27 Year
  Sex: Female

DRUGS (2)
  1. METHYLPREDNISOLONE. [Suspect]
     Active Substance: METHYLPREDNISOLONE
     Indication: SYSTEMIC LUPUS ERYTHEMATOSUS
     Dosage: 16 MG, DAILY
  2. HUMAN IMMUNOGLOBULIN [Suspect]
     Active Substance: HUMAN IMMUNOGLOBULIN G
     Indication: SYSTEMIC LUPUS ERYTHEMATOSUS
     Dosage: 400 MG/KG, 1X/DAY
     Route: 042

REACTIONS (6)
  - Coma [Fatal]
  - Cerebral haemorrhage [Fatal]
  - Vomiting [Fatal]
  - Headache [Fatal]
  - Decerebration [Fatal]
  - Muscle rigidity [Fatal]
